FAERS Safety Report 10344004 (Version 1)
Quarter: 2014Q3

REPORT INFORMATION
  Report Type: Spontaneous
  Country: IT (occurrence: None)
  Receive Date: 20140724
  Receipt Date: 20140724
  Transmission Date: 20150326
  Serious: Yes (Hospitalization)
  Sender: FDA-Public Use
  Company Number: FK201402786

PATIENT
  Age: 21 Year
  Sex: Female
  Weight: 46 kg

DRUGS (1)
  1. SODIUM CHLORIDE. [Suspect]
     Active Substance: SODIUM CHLORIDE
     Indication: ELECTROLYTE IMBALANCE
     Dosage: NOT OTHERWISE SPECIFIED
     Route: 042

REACTIONS (9)
  - Neurological symptom [None]
  - Hypotonia [None]
  - Metabolic disorder [None]
  - Caesarean section [None]
  - Exposure during pregnancy [None]
  - Tremor [None]
  - Hyperthyroidism [None]
  - Osmotic demyelination syndrome [None]
  - Muscle spasms [None]
